FAERS Safety Report 4902578-8 (Version None)
Quarter: 2006Q1

REPORT INFORMATION
  Report Type: 
  Country: None (occurrence: None)
  Receive Date: 20060202
  Receipt Date: 20060118
  Transmission Date: 20060701
  Serious: Yes (Other)
  Sender: FDA-Public Use
  Company Number: 2006-DE-00312GD

PATIENT
  Age: 33 Year
  Sex: Female

DRUGS (1)
  1. CITALOPRAM (CITALOPRAM) [Suspect]
     Indication: MAJOR DEPRESSION
     Dosage: 40 MG

REACTIONS (1)
  - DRUG INEFFECTIVE [None]
